FAERS Safety Report 6595489-6 (Version None)
Quarter: 2010Q1

REPORT INFORMATION
  Report Type: 
  Country: None (occurrence: None)
  Receive Date: 20100222
  Receipt Date: 20100222
  Transmission Date: 20100710
  Serious: Yes (Other)
  Sender: FDA-Public Use
  Company Number: None

PATIENT
  Sex: Female
  Weight: 68.9467 kg

DRUGS (1)
  1. ZOLEDRONIC ACID [Suspect]
     Indication: OSTEOPOROSIS
     Dosage: ONCE A YEAR BUT DIDN'T GO BACK FOR ANOTHER
     Dates: start: 20080731

REACTIONS (3)
  - OEDEMA PERIPHERAL [None]
  - PAIN [None]
  - SKIN DISORDER [None]
